FAERS Safety Report 5652082-7 (Version None)
Quarter: 2008Q1

REPORT INFORMATION
  Report Type: 
  Country: None (occurrence: None)
  Receive Date: 20080304
  Receipt Date: 20080220
  Transmission Date: 20080703
  Serious: Yes (Hospitalization, Other)
  Sender: FDA-Public Use
  Company Number: 2008BI004312

PATIENT
  Sex: Female

DRUGS (2)
  1. TYSABRI [Suspect]
     Indication: MULTIPLE SCLEROSIS
     Dosage: 300 UG; QM; IV
     Route: 042
     Dates: start: 20080201
  2. ANTIDEPRESSANT [Concomitant]

REACTIONS (3)
  - DEPRESSION [None]
  - EPILEPSY [None]
  - SUICIDE ATTEMPT [None]
